FAERS Safety Report 4348276-3 (Version None)
Quarter: 2004Q1

REPORT INFORMATION
  Report Type: 
  Country: None (occurrence: None)
  Receive Date: 20040329
  Receipt Date: 20031208
  Transmission Date: 20041129
  Serious: No
  Sender: FDA-Public Use
  Company Number: USA030844547

PATIENT
  Age: 9 Year
  Sex: Female
  Weight: 23 kg

DRUGS (1)
  1. STRATTERA [Suspect]
     Dosage: 25 MG/DAY
     Dates: start: 20030802

REACTIONS (2)
  - PRESCRIBED OVERDOSE [None]
  - SOMNOLENCE [None]
